FAERS Safety Report 16923899 (Version 3)
Quarter: 2024Q2

REPORT INFORMATION
  Report Type: Spontaneous
  Country: ES (occurrence: ES)
  Receive Date: 20191016
  Receipt Date: 20240406
  Transmission Date: 20240716
  Serious: Yes (Life-Threatening, Hospitalization, Other)
  Sender: FDA-Public Use
  Company Number: None

PATIENT
  Age: 38 Year
  Sex: Male

DRUGS (4)
  1. QUETIAPINE FUMARATE [Interacting]
     Active Substance: QUETIAPINE FUMARATE
     Indication: Suicide attempt
     Route: 048
     Dates: start: 20190901, end: 20190901
  2. PREGABALIN [Interacting]
     Active Substance: PREGABALIN
     Indication: Suicide attempt
     Route: 048
     Dates: start: 20190901, end: 20190901
  3. COCAINE [Interacting]
     Active Substance: COCAINE
     Indication: Product used for unknown indication
     Route: 065
     Dates: start: 20190901, end: 20190901
  4. MIRTAZAPINE [Interacting]
     Active Substance: MIRTAZAPINE
     Indication: Suicide attempt
     Route: 048
     Dates: start: 20190901, end: 20190901

REACTIONS (3)
  - Drug interaction [Unknown]
  - Coma [Recovered/Resolved]
  - Suicide attempt [Unknown]

NARRATIVE: CASE EVENT DATE: 20190901
